FAERS Safety Report 11276197 (Version 1)
Quarter: 2015Q3

REPORT INFORMATION
  Report Type: Spontaneous
  Country: IT (occurrence: IT)
  Receive Date: 20150716
  Receipt Date: 20150716
  Transmission Date: 20151125
  Serious: Yes (Hospitalization)
  Sender: FDA-Public Use
  Company Number: IT-JNJFOC-20150709430

PATIENT
  Age: 82 Year
  Sex: Female

DRUGS (7)
  1. TRIATEC [Concomitant]
     Active Substance: RAMIPRIL
     Route: 065
  2. XARELTO [Suspect]
     Active Substance: RIVAROXABAN
     Indication: CEREBROVASCULAR ACCIDENT PROPHYLAXIS
     Route: 048
     Dates: start: 20150413
  3. METFORMIN [Concomitant]
     Active Substance: METFORMIN HYDROCHLORIDE
     Route: 065
  4. TORVAST [Concomitant]
     Active Substance: ATORVASTATIN
     Route: 048
  5. XARELTO [Suspect]
     Active Substance: RIVAROXABAN
     Indication: ATRIAL FIBRILLATION
     Route: 048
     Dates: start: 20150413
  6. BENEXOL B [Concomitant]
     Route: 065
  7. FOLINA [Concomitant]
     Active Substance: FOLIC ACID
     Route: 065

REACTIONS (2)
  - Malaise [Unknown]
  - Hemiparesis [Recovered/Resolved]

NARRATIVE: CASE EVENT DATE: 20150629
